FAERS Safety Report 7153490-8 (Version None)
Quarter: 2010Q4

REPORT INFORMATION
  Report Type: 
  Country: None (occurrence: None)
  Receive Date: 20101213
  Receipt Date: 20101207
  Transmission Date: 20110411
  Serious: Yes (Other)
  Sender: FDA-Public Use
  Company Number: B0678286A

PATIENT
  Age: 38 Year
  Sex: Female

DRUGS (5)
  1. AMPICILLIN SODIUM/SULBACTAM SODIUM [Suspect]
     Indication: INFECTION
     Route: 048
     Dates: start: 20100922
  2. PREDNISOLONE [Suspect]
     Indication: INFECTION
     Dosage: 60MG PER DAY
     Route: 048
     Dates: start: 20100923, end: 20101002
  3. PETHIDINE [Concomitant]
     Indication: PAIN
     Route: 048
  4. STEMETIL [Concomitant]
     Indication: NAUSEA
     Route: 048
  5. OMEPRAZOLE [Concomitant]
     Route: 048

REACTIONS (2)
  - BLOOD PRESSURE INCREASED [None]
  - TACHYCARDIA [None]
